FAERS Safety Report 21486174 (Version 2)
Quarter: 2022Q4

REPORT INFORMATION
  Report Type: Spontaneous
  Country: US (occurrence: US)
  Receive Date: 20221020
  Receipt Date: 20221108
  Transmission Date: 20230113
  Serious: Yes (Hospitalization, Other)
  Sender: FDA-Public Use
  Company Number: US-TEVA-2022-US-2816601

PATIENT
  Age: 8 Year
  Sex: Male

DRUGS (26)
  1. CARBOPLATIN [Suspect]
     Active Substance: CARBOPLATIN
     Indication: Neoplasm
     Dosage: ICE REGIMEN; ONE CYCLE
     Route: 065
  2. CARBOPLATIN [Suspect]
     Active Substance: CARBOPLATIN
     Indication: Spinal cord neoplasm
     Dosage: CONSOLIDATION THERAPY
     Route: 065
  3. CISPLATIN [Suspect]
     Active Substance: CISPLATIN
     Indication: Neoplasm
     Dosage: INDUCTION THERAPY
     Route: 065
  4. CISPLATIN [Suspect]
     Active Substance: CISPLATIN
     Indication: Spinal cord neoplasm
  5. ETOPOSIDE [Suspect]
     Active Substance: ETOPOSIDE
     Indication: Neoplasm
     Dosage: ICE REGIMEN; ONE CYCLE
     Route: 065
  6. ETOPOSIDE [Suspect]
     Active Substance: ETOPOSIDE
     Indication: Spinal cord neoplasm
     Dosage: INDUCTION THERAPY
     Route: 065
  7. ETOPOSIDE [Suspect]
     Active Substance: ETOPOSIDE
     Dosage: CONSOLIDATION THERAPY
     Route: 065
  8. ETOPOSIDE [Suspect]
     Active Substance: ETOPOSIDE
     Dosage: METRONOMIC CHEMOTHERAPY
     Route: 065
  9. LEUCOVORIN [Suspect]
     Active Substance: LEUCOVORIN
     Indication: Neoplasm
     Dosage: INDUCTION THERAPY
     Route: 065
  10. LEUCOVORIN [Suspect]
     Active Substance: LEUCOVORIN
     Indication: Spinal cord neoplasm
  11. HYDROXYZINE [Interacting]
     Active Substance: HYDROXYZINE HYDROCHLORIDE
     Indication: Product used for unknown indication
     Route: 065
  12. IFOSFAMIDE [Suspect]
     Active Substance: IFOSFAMIDE
     Indication: Neoplasm
     Dosage: ICE REGIMEN; ONE CYCLE
     Route: 065
  13. IFOSFAMIDE [Suspect]
     Active Substance: IFOSFAMIDE
     Indication: Spinal cord neoplasm
  14. MESNA [Suspect]
     Active Substance: MESNA
     Indication: Neoplasm
     Dosage: INDUCTION THERAPY
     Route: 065
  15. MESNA [Suspect]
     Active Substance: MESNA
     Indication: Spinal cord neoplasm
  16. METHOTREXATE [Suspect]
     Active Substance: METHOTREXATE
     Indication: Neoplasm
     Dosage: HIGH-DOSE; INDUCTION THERAPY
     Route: 065
  17. METHOTREXATE [Suspect]
     Active Substance: METHOTREXATE
     Indication: Spinal cord neoplasm
  18. PROMETHAZINE [Interacting]
     Active Substance: PROMETHAZINE HYDROCHLORIDE
     Indication: Product used for unknown indication
     Route: 065
  19. VINCRISTINE [Suspect]
     Active Substance: VINCRISTINE
     Indication: Neoplasm
     Dosage: INDUCTION THERAPY
     Route: 065
  20. VINCRISTINE [Suspect]
     Active Substance: VINCRISTINE
     Indication: Spinal cord neoplasm
  21. MANNITOL [Suspect]
     Active Substance: MANNITOL
     Indication: Neoplasm
     Dosage: INDUCTION THERAPY
     Route: 065
  22. MANNITOL [Suspect]
     Active Substance: MANNITOL
     Indication: Spinal cord neoplasm
  23. CYCLOPHOSPHAMIDE [Suspect]
     Active Substance: CYCLOPHOSPHAMIDE
     Indication: Neoplasm
     Dosage: INDUCTION THERAPY
     Route: 065
  24. CYCLOPHOSPHAMIDE [Suspect]
     Active Substance: CYCLOPHOSPHAMIDE
     Indication: Spinal cord neoplasm
     Dosage: METRONOMIC CHEMOTHERAPY
     Route: 065
  25. THIOTEPA [Suspect]
     Active Substance: THIOTEPA
     Indication: Neoplasm
     Dosage: CONSOLIDATION THERAPY
     Route: 065
  26. THIOTEPA [Suspect]
     Active Substance: THIOTEPA
     Indication: Spinal cord neoplasm

REACTIONS (14)
  - Dehydration [Unknown]
  - Mucosal inflammation [Recovered/Resolved]
  - Nausea [Recovered/Resolved]
  - Eating disorder [Recovered/Resolved]
  - Colitis [Recovered/Resolved]
  - Enterobacter infection [Recovered/Resolved]
  - Klebsiella infection [Recovered/Resolved]
  - Bacteraemia [Recovered/Resolved]
  - Clostridium difficile colitis [Unknown]
  - Electrolyte imbalance [Unknown]
  - Engraftment syndrome [Unknown]
  - Drug interaction [Unknown]
  - Dystonia [Recovered/Resolved]
  - Off label use [Unknown]
